FAERS Safety Report 15271037 (Version 1)
Quarter: 2018Q3

REPORT INFORMATION
  Report Type: Report from Study
  Country: US (occurrence: US)
  Receive Date: 20180813
  Receipt Date: 20180813
  Transmission Date: 20181010
  Serious: Yes (Hospitalization)
  Sender: FDA-Public Use
  Company Number: US-BAYER-2018-146958

PATIENT
  Sex: Female

DRUGS (17)
  1. TACROLIMUS. [Concomitant]
     Active Substance: TACROLIMUS
  2. ACYCLOVIR [ACICLOVIR] [Concomitant]
     Active Substance: ACYCLOVIR
  3. LIDOCAINE. [Concomitant]
     Active Substance: LIDOCAINE
  4. AMLODIPINE BESYLATE. [Concomitant]
     Active Substance: AMLODIPINE BESYLATE
  5. NEXAVAR [Suspect]
     Active Substance: SORAFENIB
     Indication: ACUTE LYMPHOCYTIC LEUKAEMIA
  6. LORAZEPAM. [Concomitant]
     Active Substance: LORAZEPAM
  7. PROCHLORPERAZINE MALEATE. [Concomitant]
     Active Substance: PROCHLORPERAZINE MALEATE
  8. CLOTRIMAZOL [Concomitant]
     Active Substance: CLOTRIMAZOLE
  9. LEVOFLOXACIN. [Concomitant]
     Active Substance: LEVOFLOXACIN
  10. HEPARIN FLUSH [Concomitant]
     Active Substance: HEPARIN SODIUM
  11. HYDROMORPHONE HCL [Concomitant]
     Active Substance: HYDROMORPHONE HYDROCHLORIDE
  12. TRAMADOL HYDROCHLORIDE. [Concomitant]
     Active Substance: TRAMADOL HYDROCHLORIDE
  13. NEXAVAR [Suspect]
     Active Substance: SORAFENIB
     Indication: CHRONIC MYELOID LEUKAEMIA
     Dosage: 400 MG, BID
     Route: 048
     Dates: end: 2018
  14. METOCLOPRAMIDE HCL [Concomitant]
     Active Substance: METOCLOPRAMIDE HYDROCHLORIDE
  15. ONDANSETRON [Concomitant]
     Active Substance: ONDANSETRON
  16. CEFPODOXIME PROXETIL. [Concomitant]
     Active Substance: CEFPODOXIME PROXETIL
  17. CELECOXIB. [Concomitant]
     Active Substance: CELECOXIB

REACTIONS (3)
  - Hospitalisation [None]
  - Off label use [None]
  - Product use in unapproved indication [None]
